FAERS Safety Report 16070780 (Version 1)
Quarter: 2019Q1

REPORT INFORMATION
  Report Type: Spontaneous
  Country: FR (occurrence: FR)
  Receive Date: 20190314
  Receipt Date: 20190314
  Transmission Date: 20190418
  Serious: Yes (Death)
  Sender: FDA-Public Use
  Company Number: FR-ACCORD-112533

PATIENT
  Age: 92 Year
  Sex: Male
  Weight: 75.4 kg

DRUGS (6)
  1. FINASTERIDE. [Suspect]
     Active Substance: FINASTERIDE
     Indication: BENIGN PROSTATIC HYPERPLASIA
     Dosage: 1-1/2-0
     Route: 048
     Dates: end: 20180925
  2. ELIQUIS [Suspect]
     Active Substance: APIXABAN
     Indication: CEREBROVASCULAR ACCIDENT
     Route: 048
     Dates: end: 20181001
  3. UVEDOSE [Concomitant]
     Active Substance: CHOLECALCIFEROL
  4. BISOCE [Suspect]
     Active Substance: BISOPROLOL
     Indication: HYPERTENSION
     Route: 048
  5. DOLIPRANE [Concomitant]
     Active Substance: ACETAMINOPHEN
  6. RAMIPRIL. [Suspect]
     Active Substance: RAMIPRIL
     Indication: HYPERTENSION
     Dosage: 3.75MG-0-2.5MG
     Route: 048
     Dates: end: 20181001

REACTIONS (6)
  - Dehydration [Fatal]
  - Coma [Fatal]
  - Acute kidney injury [Fatal]
  - Fall [Fatal]
  - Agitation [Fatal]
  - Confusional state [Fatal]

NARRATIVE: CASE EVENT DATE: 20180920
